FAERS Safety Report 7119824-5 (Version None)
Quarter: 2010Q4

REPORT INFORMATION
  Report Type: 
  Country: None (occurrence: None)
  Receive Date: 20101123
  Receipt Date: 20101006
  Transmission Date: 20110411
  Serious: No
  Sender: FDA-Public Use
  Company Number: US-BRISTOL-MYERS SQUIBB COMPANY-15264195

PATIENT
  Age: 79 Year
  Sex: Female

DRUGS (1)
  1. ONGLYZA [Suspect]
     Dosage: STARTED 6 MONTHS AGO
     Route: 048

REACTIONS (2)
  - DIARRHOEA [None]
  - HYPERHIDROSIS [None]
